FAERS Safety Report 8717999 (Version 2)
Quarter: 2012Q4

REPORT INFORMATION
  Report Type: 
  Country: JP (occurrence: JP)
  Receive Date: 20120810
  Receipt Date: 20120920
  Transmission Date: 20130627
  Serious: Yes (Hospitalization)
  Sender: FDA-Public Use
  Company Number: JP-BAYER-2012-078253

PATIENT
  Age: 72 Year
  Sex: Male

DRUGS (16)
  1. NEXAVAR [Suspect]
     Indication: HEPATIC NEOPLASM MALIGNANT
     Dosage: Daily dose 600 mg (200 mg + 400 mg)
     Route: 048
     Dates: start: 20120703, end: 20120718
  2. MIRIPLATIN [Concomitant]
     Dosage: Daily dose 20 mg
     Route: 013
     Dates: start: 20120510
  3. PREDONINE [Concomitant]
     Indication: MUSCULOSKELETAL PAIN
     Dosage: 5 mg, BID
     Route: 048
  4. LYRICA [Concomitant]
     Indication: ANALGESIC THERAPY
     Dosage: 75 mg, QD
     Route: 048
  5. LOPEMIN [Concomitant]
     Indication: DIARRHOEA
     Dosage: 1 mg, BID
     Route: 048
  6. VILDAGLIPTIN [Concomitant]
     Indication: DIABETES MELLITUS
     Dosage: 50 mg, OM
     Route: 048
  7. PANALDINE [Concomitant]
     Indication: THROMBOSIS PROPHYLAXIS
     Dosage: 100 mg, OM
     Route: 048
  8. DIOVAN [Concomitant]
     Indication: HYPERTENSION
     Dosage: 40 mg, OM
     Route: 048
  9. DIOVAN [Concomitant]
     Indication: HYPERTENSION
     Dosage: UNK
     Route: 048
  10. FLIVAS [Concomitant]
     Indication: NOCTURIA
     Dosage: 25 mg, OM
     Route: 048
  11. FLIVAS [Concomitant]
     Indication: NOCTURIA
     Dosage: UNK
     Route: 048
  12. ALLOPURINOL [Concomitant]
     Indication: BLOOD URIC ACID ABNORMAL
     Dosage: 100 mg, QD
     Route: 048
  13. ZYLORIC [Concomitant]
     Indication: BLOOD URIC ACID ABNORMAL
     Dosage: UNK
     Route: 048
  14. PRAVASTATIN SODIUM [Concomitant]
     Indication: HYPERLIPIDAEMIA
     Dosage: 10 mg, QD
     Route: 048
  15. MEVALOTIN [Concomitant]
     Indication: HYPERLIPIDAEMIA
     Dosage: UNK
     Route: 048
  16. MARZULENE S [Concomitant]
     Indication: GASTRITIS
     Dosage: 0.5 g, QD
     Route: 048

REACTIONS (3)
  - Rhabdomyolysis [Recovering/Resolving]
  - Pyrexia [Recovering/Resolving]
  - Diarrhoea [Recovering/Resolving]
